FAERS Safety Report 6674417-9 (Version None)
Quarter: 2010Q2

REPORT INFORMATION
  Report Type: 
  Country: None (occurrence: None)
  Receive Date: 20100409
  Receipt Date: 20100405
  Transmission Date: 20101027
  Serious: Yes (Death)
  Sender: FDA-Public Use
  Company Number: RU-SANOFI-AVENTIS-200919146GDDC

PATIENT
  Age: 51 Year
  Sex: Female
  Weight: 90 kg

DRUGS (7)
  1. PLACEBO [Suspect]
     Indication: NON-SMALL CELL LUNG CANCER
     Dosage: DOSE UNIT: 6 MG/KG
     Route: 042
     Dates: start: 20090730, end: 20090730
  2. DOCETAXEL [Suspect]
     Indication: NON-SMALL CELL LUNG CANCER
     Dosage: DOSE UNIT: 75 MG/M**2
     Route: 042
     Dates: start: 20090730, end: 20090730
  3. METOPROLOL TARTRATE [Concomitant]
     Dates: start: 20080101
  4. FELODIPINE [Concomitant]
     Dates: start: 20080101
  5. CORTICOSTEROID NOS [Concomitant]
  6. AMOXICILLIN AND CLAVULANATE POTASSIUM [Concomitant]
  7. PARACETAMOL [Concomitant]

REACTIONS (1)
  - MYOCARDIAL INFARCTION [None]
